FAERS Safety Report 6049506-2 (Version None)
Quarter: 2009Q1

REPORT INFORMATION
  Report Type: 
  Country: None (occurrence: None)
  Receive Date: 20090121
  Receipt Date: 20090109
  Transmission Date: 20090719
  Serious: Yes (Death)
  Sender: FDA-Public Use
  Company Number: TPG2008A01510

PATIENT
  Age: 57 Year
  Sex: Female

DRUGS (5)
  1. ACTOPLUS MET [Suspect]
     Indication: TYPE 2 DIABETES MELLITUS
     Dosage: PIOGLITAZONE 30 MG PLUS METFORMIN
     Route: 048
     Dates: start: 20080821, end: 20081112
  2. GLUCOPHAGE [Suspect]
  3. GLIBENCLAMIDE [Suspect]
  4. ANTIHYPERTENSIVES (ANTIHYPERTENSIVES) [Concomitant]
  5. ANALGESICS (ANALGESICS) [Concomitant]

REACTIONS (2)
  - ROAD TRAFFIC ACCIDENT [None]
  - SOMNOLENCE [None]
